FAERS Safety Report 14713225 (Version 5)
Quarter: 2019Q2

REPORT INFORMATION
  Report Type: Spontaneous
  Country: US (occurrence: US)
  Receive Date: 20180404
  Receipt Date: 20190624
  Transmission Date: 20190711
  Serious: No
  Sender: FDA-Public Use
  Company Number: US-PFIZER INC-2018135361

PATIENT
  Age: 64 Year
  Sex: Female
  Weight: 82 kg

DRUGS (4)
  1. JANUVIA [Concomitant]
     Active Substance: SITAGLIPTIN PHOSPHATE
     Indication: DIABETES MELLITUS
     Dosage: UNK
     Dates: start: 201803
  2. LYRICA [Suspect]
     Active Substance: PREGABALIN
     Dosage: 4 DF, DAILY (ONE CAPSULE IN MORNING, TWO CAPSULES IN THE AFTERNOON, AND ONE CAPSULE AT NIGHT)
     Route: 048
  3. METFORMIN [Concomitant]
     Active Substance: METFORMIN HYDROCHLORIDE
     Indication: DIABETES MELLITUS
     Dosage: UNK
     Dates: start: 1988
  4. LYRICA [Suspect]
     Active Substance: PREGABALIN
     Indication: NEUROPATHY PERIPHERAL
     Dosage: 900 MG, DAILY (SIX 150 MG CAPSULES PER DAY/2 IN THE MORNING, 2 AT DINNER TIME AND 2 AT NIGHT)
     Route: 048

REACTIONS (7)
  - Prescribed overdose [Unknown]
  - Nasopharyngitis [Unknown]
  - Drug ineffective [Unknown]
  - Chills [Unknown]
  - Weight decreased [Unknown]
  - Malaise [Unknown]
  - Influenza [Unknown]

NARRATIVE: CASE EVENT DATE: 201904
